FAERS Safety Report 7535322-9 (Version None)
Quarter: 2011Q2

REPORT INFORMATION
  Report Type: 
  Country: None (occurrence: None)
  Receive Date: 20110609
  Receipt Date: 20080312
  Transmission Date: 20111010
  Serious: Yes (Hospitalization, Other)
  Sender: FDA-Public Use
  Company Number: PHHO2007US18782

PATIENT
  Sex: Female
  Weight: 50.1 kg

DRUGS (19)
  1. PROGRAF [Concomitant]
     Dosage: 4 DF, UNK
     Dates: start: 20071103
  2. PROGRAF [Concomitant]
     Dosage: 4 DF, UNK
     Dates: start: 20071113, end: 20071113
  3. MYFORTIC [Suspect]
     Dosage: 360 MG, BID
     Route: 048
     Dates: start: 20071103, end: 20071104
  4. PROGRAF [Concomitant]
     Dosage: 1 DF, UNK
     Dates: start: 20071130, end: 20071205
  5. RAPAMUNE [Concomitant]
     Dates: start: 20071105, end: 20071205
  6. MYFORTIC [Suspect]
     Indication: RENAL TRANSPLANT
     Dosage: 1440 MG, UNK
     Route: 048
     Dates: start: 20071101, end: 20071102
  7. PROGRAF [Concomitant]
     Indication: IMMUNOSUPPRESSION
     Dosage: 2 DF, UNK
     Dates: start: 20071102, end: 20071102
  8. PROGRAF [Concomitant]
     Dosage: 2 DF, UNK
     Dates: start: 20071110, end: 20071112
  9. PROGRAF [Concomitant]
     Dosage: 2 DF, UNK
     Dates: start: 20071120, end: 20071126
  10. PREDNISONE [Concomitant]
     Dosage: 10 DF, UNK
     Dates: start: 20071128, end: 20071130
  11. PREDNISONE [Concomitant]
     Dosage: 5 DF, UNK
     Dates: start: 20071201
  12. ORTHOCLONE OKT3 [Concomitant]
     Dates: start: 20071203, end: 20071205
  13. METHYLPREDNISOLONE [Concomitant]
     Dosage: 250 U, UNK
     Dates: start: 20071122
  14. MYFORTIC [Suspect]
     Dosage: 1440 MG, UNK
     Dates: start: 20071205
  15. PREDNISONE [Concomitant]
     Indication: IMMUNOSUPPRESSION
     Dosage: 5 DF, UNK
     Dates: start: 20071102, end: 20071127
  16. METHYLPREDNISOLONE [Concomitant]
     Dosage: 500 U, UNK
     Dates: start: 20071202, end: 20071203
  17. PROGRAF [Concomitant]
     Dates: start: 20071206, end: 20071209
  18. THYMOGLOBULIN [Concomitant]
     Dates: start: 20071125
  19. SOLU-MEDROL [Concomitant]
     Indication: IMMUNOSUPPRESSION
     Dosage: 500 MG, UNK
     Dates: start: 20071106, end: 20071107

REACTIONS (7)
  - BLOOD CREATININE INCREASED [None]
  - COMPLICATIONS OF TRANSPLANTED KIDNEY [None]
  - KIDNEY TRANSPLANT REJECTION [None]
  - PYREXIA [None]
  - BIOPSY KIDNEY [None]
  - RENAL VEIN OCCLUSION [None]
  - CULTURE URINE POSITIVE [None]
